FAERS Safety Report 7575715-7 (Version None)
Quarter: 2011Q2

REPORT INFORMATION
  Report Type: 
  Country: None (occurrence: None)
  Receive Date: 20110628
  Receipt Date: 20110616
  Transmission Date: 20111010
  Serious: No
  Sender: FDA-Public Use
  Company Number: US-BIOGENIDEC-2010BI044698

PATIENT
  Sex: Female

DRUGS (2)
  1. TRILEPTAL [Concomitant]
     Indication: TRIGEMINAL NEURALGIA
  2. TYSABRI [Suspect]
     Indication: MULTIPLE SCLEROSIS
     Route: 042
     Dates: start: 20070914

REACTIONS (9)
  - STRESS [None]
  - CEREBROVASCULAR DISORDER [None]
  - LOSS OF CONTROL OF LEGS [None]
  - BONE PAIN [None]
  - OEDEMA PERIPHERAL [None]
  - SENSATION OF HEAVINESS [None]
  - TRIGEMINAL NEURALGIA [None]
  - FALL [None]
  - MUSCLE SPASMS [None]
